FAERS Safety Report 9841711 (Version 3)
Quarter: 2014Q1

REPORT INFORMATION
  Report Type: Spontaneous
  Country: US (occurrence: US)
  Receive Date: 20140124
  Receipt Date: 20140213
  Transmission Date: 20141002
  Serious: Yes (Hospitalization, Other)
  Sender: FDA-Public Use
  Company Number: US-GILEAD-2014-0091094

PATIENT
  Sex: Female

DRUGS (3)
  1. LETAIRIS [Suspect]
     Indication: PULMONARY ARTERIAL HYPERTENSION
     Dosage: 5 MG, UNK
     Route: 065
     Dates: start: 20130108
  2. LETAIRIS [Suspect]
     Dosage: 10 MG, QD
     Route: 065
  3. ADCIRCA [Concomitant]

REACTIONS (1)
  - Pulmonary hypertension [Not Recovered/Not Resolved]
